FAERS Safety Report 20603568 (Version 1)
Quarter: 2022Q1

REPORT INFORMATION
  Report Type: Spontaneous
  Country: FR (occurrence: None)
  Receive Date: 20220316
  Receipt Date: 20220316
  Transmission Date: 20220424
  Serious: Yes (Hospitalization)
  Sender: FDA-Public Use
  Company Number: FR-ROCHE-3048040

PATIENT
  Age: 23 Year
  Sex: Female

DRUGS (13)
  1. BROMAZEPAM [Suspect]
     Active Substance: BROMAZEPAM
     Indication: Anxiolytic therapy
     Route: 048
  2. BROMAZEPAM [Suspect]
     Active Substance: BROMAZEPAM
     Indication: Boredom
  3. BROMAZEPAM [Suspect]
     Active Substance: BROMAZEPAM
     Indication: Anhedonia
  4. CLONAZEPAM [Suspect]
     Active Substance: CLONAZEPAM
     Indication: Anxiolytic therapy
     Dosage: 3 TO 4 MG/DAY, DAILY
     Route: 048
  5. CLONAZEPAM [Suspect]
     Active Substance: CLONAZEPAM
     Indication: Boredom
  6. CLONAZEPAM [Suspect]
     Active Substance: CLONAZEPAM
     Indication: Anhedonia
  7. XANAX [Suspect]
     Active Substance: ALPRAZOLAM
     Indication: Anxiolytic therapy
     Route: 048
  8. XANAX [Suspect]
     Active Substance: ALPRAZOLAM
     Indication: Boredom
  9. XANAX [Suspect]
     Active Substance: ALPRAZOLAM
     Indication: Anhedonia
  10. CAFFEINE [Suspect]
     Active Substance: CAFFEINE
     Indication: Fatigue management
     Dosage: 200 MG, DAILY (NIGHT)
     Route: 048
  11. CANNABIS SATIVA SUBSP. INDICA TOP [Suspect]
     Active Substance: CANNABIS SATIVA SUBSP. INDICA TOP
     Indication: Product used for unknown indication
     Dosage: 10 JOINTS/DAY, DAILY
     Route: 055
  12. KETAMINE [Suspect]
     Active Substance: KETAMINE
     Indication: Product used for unknown indication
     Dosage: 1 TO 2 TIMES/MONTH
     Route: 065
  13. LYSERGIDE [Suspect]
     Active Substance: LYSERGIDE
     Indication: Product used for unknown indication
     Dosage: 5 BLOTTERS/TAKE ONCE A MONTH
     Route: 048

REACTIONS (3)
  - Drug dependence [Not Recovered/Not Resolved]
  - Cognitive disorder [Unknown]
  - Antisocial behaviour [Unknown]
